FAERS Safety Report 7022499-7 (Version None)
Quarter: 2010Q3

REPORT INFORMATION
  Report Type: 
  Country: None (occurrence: None)
  Receive Date: 20100930
  Receipt Date: 20100923
  Transmission Date: 20110219
  Serious: Yes (Death)
  Sender: FDA-Public Use
  Company Number: US-ROCHE-729828

PATIENT
  Age: 80 Year
  Sex: Female

DRUGS (3)
  1. BEVACIZUMAB [Suspect]
     Dosage: FREQUENCY: OVER 30 TO 90 MINUTES ON DAY 1 AND DAY 15.
     Route: 042
     Dates: start: 20100701, end: 20100701
  2. PACLITAXEL [Suspect]
     Dosage: FREQUENCY: OVER 30 MINUTES ON DAYS 1, 8 AND 15, .LAST DOSE PRIOR TO SAE: 08 JULY 2010.
     Route: 042
     Dates: start: 20100701, end: 20100715
  3. PACLITAXEL [Suspect]
     Route: 042
     Dates: start: 20100803

REACTIONS (1)
  - ACUTE RESPIRATORY DISTRESS SYNDROME [None]
